FAERS Safety Report 24881285 (Version 2)
Quarter: 2025Q3

REPORT INFORMATION
  Report Type: Report from Study
  Country: JP (occurrence: JP)
  Receive Date: 20250124
  Receipt Date: 20250803
  Transmission Date: 20251021
  Serious: Yes (Other)
  Sender: ALEXION PHARMACEUTICALS
  Company Number: JP-ASTRAZENECA-230076490_011820_P_1

PATIENT
  Age: 14 Year
  Sex: Female

DRUGS (1)
  1. KOSELUGO [Suspect]
     Active Substance: SELUMETINIB
     Indication: Neurofibroma
     Dosage: 30 MILLIGRAM, BID
     Dates: start: 20230904

REACTIONS (4)
  - Pulmonary valve incompetence [Recovered/Resolved]
  - Dermatitis [Recovered/Resolved]
  - Eczema [Recovered/Resolved]
  - Alopecia [Recovered/Resolved]

NARRATIVE: CASE EVENT DATE: 20231001
